FAERS Safety Report 6491805-4 (Version None)
Quarter: 2009Q4

REPORT INFORMATION
  Report Type: 
  Country: None (occurrence: None)
  Receive Date: 20091210
  Receipt Date: 20091201
  Transmission Date: 20100525
  Serious: Yes (Death)
  Sender: FDA-Public Use
  Company Number: 154

PATIENT
  Age: 33 Year
  Sex: Male

DRUGS (8)
  1. FAZACLO ODT [Suspect]
     Indication: BIPOLAR DISORDER
     Dosage: 25 MG PO DAILY
     Route: 048
     Dates: start: 20070913, end: 20071012
  2. FAZACLO ODT [Suspect]
     Indication: PSYCHOTIC DISORDER
     Dosage: 25 MG PO DAILY
     Route: 048
     Dates: start: 20070913, end: 20071012
  3. ABILIFY [Concomitant]
  4. LEXAPRO [Concomitant]
  5. RITALIN [Concomitant]
  6. SEROQUEL [Concomitant]
  7. ATIVAN (PRN) [Concomitant]
  8. TOPROL-XL [Concomitant]

REACTIONS (3)
  - COMPLETED SUICIDE [None]
  - HOMICIDAL IDEATION [None]
  - INTENTIONAL OVERDOSE [None]
